FAERS Safety Report 6887685-5 (Version None)
Quarter: 2010Q3

REPORT INFORMATION
  Report Type: 
  Country: None (occurrence: None)
  Receive Date: 20100728
  Receipt Date: 20100629
  Transmission Date: 20110219
  Serious: Yes (Death, Hospitalization)
  Sender: FDA-Public Use
  Company Number: 2010002583

PATIENT
  Age: 67 Year
  Sex: Male

DRUGS (7)
  1. ERLOTINIB HYDROCHLORIDE [Suspect]
     Indication: NON-SMALL CELL LUNG CANCER
     Dosage: (150 MG,QD), ORAL; (100 MG,QD), ORAL
     Route: 048
     Dates: start: 20100224, end: 20100521
  2. ERLOTINIB HYDROCHLORIDE [Suspect]
     Indication: NON-SMALL CELL LUNG CANCER
     Dosage: (150 MG,QD), ORAL; (100 MG,QD), ORAL
     Route: 048
     Dates: start: 20100522, end: 20100606
  3. LORAZEPAM [Concomitant]
  4. ZUCLOPENTHIXOL (ZUCLOPENTHIXOL) [Concomitant]
  5. AMITRIPTYLINE HCL [Concomitant]
  6. LIPIKAR [Concomitant]
  7. CIMETIDINE [Concomitant]

REACTIONS (2)
  - COMA [None]
  - METASTASES TO CENTRAL NERVOUS SYSTEM [None]
